FAERS Safety Report 8492072-2 (Version None)
Quarter: 2012Q3

REPORT INFORMATION
  Report Type: 
  Country: None (occurrence: None)
  Receive Date: 20120706
  Receipt Date: 20120628
  Transmission Date: 20120928
  Serious: Yes (Hospitalization, Other)
  Sender: FDA-Public Use
  Company Number: DE-VERTEX PHARMACEUTICALS INC.-000000000000000682

PATIENT
  Age: 46 Year
  Sex: Male
  Weight: 99.1 kg

DRUGS (6)
  1. RIBAVIRIN [Concomitant]
     Indication: HEPATITIS C
     Route: 048
     Dates: start: 20120217
  2. CETIRIZINE HCL [Concomitant]
     Dates: start: 20120417
  3. PEGINTERFERON ALFA-2A [Concomitant]
     Indication: HEPATITIS C
     Dosage: DOSAGE FORM: UNSPECIFIED
     Route: 058
     Dates: start: 20120217
  4. DERMATOP [Concomitant]
     Dates: start: 20120417
  5. TELAPREVIR [Suspect]
     Indication: HEPATITIS C
     Dosage: DOSAGE FORM: TABLET
     Route: 048
     Dates: start: 20120217, end: 20120505
  6. LINOLA FETT [Concomitant]
     Dates: start: 20120316

REACTIONS (1)
  - RASH [None]
